FAERS Safety Report 14631355 (Version 2)
Quarter: 2018Q2

REPORT INFORMATION
  Report Type: Spontaneous
  Country: FR (occurrence: FR)
  Receive Date: 20180313
  Receipt Date: 20180409
  Transmission Date: 20180711
  Serious: Yes (Hospitalization)
  Sender: FDA-Public Use
  Company Number: FR-PFIZER INC-2018099330

PATIENT
  Age: 82 Year
  Sex: Male
  Weight: 86 kg

DRUGS (26)
  1. TARGOCID [Suspect]
     Active Substance: TEICOPLANIN
     Indication: DIABETIC FOOT
     Dosage: 24 MG/KG, 1X/DAY
     Route: 042
     Dates: start: 20180111, end: 20180126
  2. PHOSPHONEUROS [Concomitant]
     Active Substance: CALCIUM PHOSPHATE, DIBASIC, ANHYDROUS\MAGNESIUM GLYCEROPHOSPHATE\PHOSPHORIC ACID\SODIUM PHOSPHATE, DIBASIC
     Dosage: 150 GTT, 1X/DAY
     Route: 048
  3. INSULATARD /00646002/ [Concomitant]
     Active Substance: INSULIN HUMAN
     Dosage: UNK
     Route: 058
  4. MAG 2 /00454301/ [Concomitant]
     Active Substance: MAGNESIUM CARBONATE
     Dosage: 6 DF, 1X/DAY
     Route: 048
  5. FOLINORAL [Concomitant]
     Active Substance: LEUCOVORIN CALCIUM
     Dosage: 1 DF, 1X/DAY
     Route: 048
  6. DIFFU K [Concomitant]
     Active Substance: POTASSIUM CHLORIDE
     Dosage: 2 DF, 1X/DAY
     Route: 048
  7. LEVOFLOXACIN. [Suspect]
     Active Substance: LEVOFLOXACIN
     Indication: DIABETIC FOOT
     Dosage: 750 MG, 1X/DAY
     Route: 048
     Dates: start: 20171218
  8. BISOCE [Concomitant]
     Active Substance: BISOPROLOL
     Dosage: 1 DF, 1X/DAY
     Route: 048
  9. KARDEGIC [Concomitant]
     Active Substance: ASPIRIN DL-LYSINE
     Dosage: 1 DF, 1X/DAY
     Route: 048
  10. MAG 2 /00454301/ [Concomitant]
     Active Substance: MAGNESIUM CARBONATE
     Dosage: UNK
     Route: 048
  11. ZYVOXID [Suspect]
     Active Substance: LINEZOLID
     Indication: DIABETIC FOOT
     Dosage: 1200 MG, 1X/DAY
     Route: 048
     Dates: start: 20171228, end: 20180111
  12. RIFAMPICINE [Suspect]
     Active Substance: RIFAMPIN
     Indication: DIABETIC FOOT
     Dosage: 900 MG, 1X/DAY
     Route: 048
     Dates: start: 20171228, end: 20180105
  13. FOLINORAL [Concomitant]
     Active Substance: LEUCOVORIN CALCIUM
     Dosage: UNK
     Route: 048
  14. LANSOPRAZOLE. [Concomitant]
     Active Substance: LANSOPRAZOLE
     Dosage: 15 MG, 1X/DAY
     Route: 048
  15. NOVORAPID [Concomitant]
     Active Substance: INSULIN ASPART
     Dosage: UNK
     Route: 048
  16. DIFFU K [Concomitant]
     Active Substance: POTASSIUM CHLORIDE
     Dosage: UNK
     Route: 048
  17. LOVENOX [Concomitant]
     Active Substance: ENOXAPARIN SODIUM
     Dosage: UNK
     Route: 048
  18. CRESTOR [Concomitant]
     Active Substance: ROSUVASTATIN CALCIUM
     Dosage: UNK
     Route: 048
  19. INSULATARD /00646002/ [Concomitant]
     Active Substance: INSULIN HUMAN
     Dosage: 12 IU, 1X/DAY
     Route: 058
  20. LASILIX /00032601/ [Concomitant]
     Active Substance: FUROSEMIDE
     Dosage: 1 DF, 1X/DAY
  21. AMLOR [Concomitant]
     Active Substance: AMLODIPINE BESYLATE
     Dosage: 1 DF, 1X/DAY
     Route: 048
  22. CORDARONE [Concomitant]
     Active Substance: AMIODARONE HYDROCHLORIDE
     Dosage: 100 MG, 1X/DAY
     Route: 048
  23. CRESTOR [Concomitant]
     Active Substance: ROSUVASTATIN CALCIUM
     Dosage: 5 MG, 1X/DAY
     Route: 048
  24. RAMIPRIL. [Concomitant]
     Active Substance: RAMIPRIL
     Dosage: 2.5 MG, 1X/DAY
     Route: 048
  25. TEMESTA /00273201/ [Concomitant]
     Active Substance: LORAZEPAM
     Dosage: 1 DF, 1X/DAY
     Route: 048
  26. LOVENOX [Concomitant]
     Active Substance: ENOXAPARIN SODIUM
     Dosage: 4000 IU, 1X/DAY
     Route: 048

REACTIONS (4)
  - Neutropenia [Not Recovered/Not Resolved]
  - Lymphopenia [Not Recovered/Not Resolved]
  - Petechiae [Not Recovered/Not Resolved]
  - Thrombocytopenia [Recovered/Resolved]

NARRATIVE: CASE EVENT DATE: 20180105
